FAERS Safety Report 19207667 (Version 2)
Quarter: 2021Q3

REPORT INFORMATION
  Report Type: Spontaneous
  Country: PL (occurrence: PL)
  Receive Date: 20210503
  Receipt Date: 20210709
  Transmission Date: 20211014
  Serious: Yes (Hospitalization, Other)
  Sender: FDA-Public Use
  Company Number: PL-JNJFOC-20210452911

PATIENT
  Age: 89 Year
  Sex: Male

DRUGS (1)
  1. RIVAROXABAN [Suspect]
     Active Substance: RIVAROXABAN
     Indication: ATRIAL FIBRILLATION
     Dosage: 15 MG
     Route: 048

REACTIONS (6)
  - Thrombocytopenia [Unknown]
  - Prostate cancer metastatic [Unknown]
  - Renal failure [Unknown]
  - Cardiac failure [Unknown]
  - International normalised ratio increased [Unknown]
  - Bone pain [Unknown]
